FAERS Safety Report 9798937 (Version 3)
Quarter: 2015Q3

REPORT INFORMATION
  Report Type: Spontaneous
  Country: US (occurrence: US)
  Receive Date: 20140106
  Receipt Date: 20150806
  Transmission Date: 20151125
  Serious: No
  Sender: FDA-Public Use
  Company Number: US-GILEAD-2010-0029859

PATIENT
  Age: 65 Year
  Sex: Male
  Weight: 72.57 kg

DRUGS (19)
  1. LOPERAMIDE [Concomitant]
     Active Substance: LOPERAMIDE
  2. CALTRATE W/VIT D [Concomitant]
  3. WARFARIN [Concomitant]
     Active Substance: WARFARIN
  4. POTASSIUM CHLORIDE. [Concomitant]
     Active Substance: POTASSIUM CHLORIDE
  5. FEXOFENADINE HCL [Concomitant]
     Active Substance: FEXOFENADINE HYDROCHLORIDE
  6. OXYGEN. [Concomitant]
     Active Substance: OXYGEN
  7. POLYSPORIN [Concomitant]
     Active Substance: BACITRACIN ZINC\POLYMYXIN B SULFATE
  8. LUXIQ [Concomitant]
     Active Substance: BETAMETHASONE VALERATE
  9. ALPRAZOLAM. [Concomitant]
     Active Substance: ALPRAZOLAM
  10. LETAIRIS [Suspect]
     Active Substance: AMBRISENTAN
     Indication: PULMONARY ARTERIAL HYPERTENSION
     Route: 048
     Dates: start: 20100126
  11. TYLENOL EX-STR [Concomitant]
  12. FLOLAN [Concomitant]
     Active Substance: EPOPROSTENOL SODIUM
  13. FUROSEMIDE. [Concomitant]
     Active Substance: FUROSEMIDE
  14. MULTIVITAMIN [Concomitant]
     Active Substance: VITAMINS
  15. FLUTICASONE PROP [Concomitant]
  16. CALCIUM CITRATE [Concomitant]
     Active Substance: CALCIUM CITRATE
  17. BISACODYL. [Concomitant]
     Active Substance: BISACODYL
  18. PEPCID [Concomitant]
     Active Substance: FAMOTIDINE
  19. FOLIC ACID. [Concomitant]
     Active Substance: FOLIC ACID

REACTIONS (2)
  - Fatigue [Unknown]
  - Lethargy [Unknown]
